FAERS Safety Report 7703543-8 (Version None)
Quarter: 2011Q3

REPORT INFORMATION
  Report Type: 
  Country: None (occurrence: None)
  Receive Date: 20110823
  Receipt Date: 20110810
  Transmission Date: 20111222
  Serious: Yes (Life-Threatening, Hospitalization)
  Sender: FDA-Public Use
  Company Number: GB-CELGENEUS-167-CCAZA-11030860

PATIENT
  Sex: Male
  Weight: 68.8 kg

DRUGS (10)
  1. AZACITIDINE [Suspect]
     Dosage: 140 MILLIGRAM/SQ. METER
     Route: 058
     Dates: start: 20110104, end: 20110515
  2. AZACITIDINE [Suspect]
     Dosage: 135 MILLIGRAM/SQ. METER
     Route: 058
     Dates: start: 20110606
  3. BISOPROLOL FUMARATE [Concomitant]
     Indication: HYPERTENSION
     Dosage: 5 MILLIGRAM
     Route: 048
     Dates: start: 20100101
  4. ACYCLOVIR [Concomitant]
     Indication: PROPHYLAXIS
     Dosage: 800 MILLIGRAM
     Route: 048
     Dates: start: 20110104
  5. ISOSORBIDE MONONITRATE [Concomitant]
     Dosage: 60 MILLIGRAM
     Route: 048
     Dates: start: 20110101
  6. ATORVASTATIN [Concomitant]
     Dosage: 40 MILLIGRAM
     Route: 048
     Dates: start: 20100101
  7. ONDANSETRON [Concomitant]
     Indication: ANTIEMETIC SUPPORTIVE CARE
     Dosage: 16 MILLIGRAM
     Route: 048
     Dates: start: 20110704
  8. CIPROFLOXACIN [Concomitant]
     Indication: PROPHYLAXIS
     Dosage: 1500 MILLIGRAM
     Route: 048
     Dates: start: 20110509
  9. FLUCONAZOLE [Concomitant]
     Indication: ANTIFUNGAL PROPHYLAXIS
     Dosage: 400 MILLIGRAM
     Route: 048
     Dates: start: 20110104
  10. RAMIPRIL [Concomitant]
     Indication: HYPERTENSION
     Dosage: 2.5 MILLIGRAM
     Route: 048
     Dates: start: 20100101

REACTIONS (3)
  - DISSEMINATED INTRAVASCULAR COAGULATION [None]
  - SURGERY [None]
  - SUBDURAL HAEMATOMA [None]
